FAERS Safety Report 17322799 (Version 1)
Quarter: 2020Q1

REPORT INFORMATION
  Report Type: Spontaneous
  Country: US (occurrence: US)
  Receive Date: 20200124
  Receipt Date: 20200124
  Transmission Date: 20200409
  Serious: Yes (Hospitalization)
  Sender: FDA-Public Use
  Company Number: None

PATIENT
  Sex: Female
  Weight: 48.6 kg

DRUGS (10)
  1. XPOVIO [Suspect]
     Active Substance: SELINEXOR
     Indication: PLASMA CELL MYELOMA
     Dosage: ?          OTHER FREQUENCY:TWICE A WEEK;?
     Route: 048
     Dates: start: 20191223, end: 20200124
  2. ACYCLOVIR 400MG [Concomitant]
     Active Substance: ACYCLOVIR
  3. LEVOTHYROXINE 50MCG [Concomitant]
     Active Substance: LEVOTHYROXINE
  4. PROCHLORPERAZINE 10MG [Concomitant]
  5. MORPHINE 15MG [Concomitant]
     Active Substance: MORPHINE
  6. FERROUS SULFATE. [Concomitant]
     Active Substance: FERROUS SULFATE
  7. LOSARTAN-HCTZ 100-25MG [Concomitant]
  8. OXYCODONE 10MG [Concomitant]
     Active Substance: OXYCODONE
  9. DEXAMETHASONE. [Concomitant]
     Active Substance: DEXAMETHASONE
  10. SENNA 8.6MG [Concomitant]

REACTIONS (1)
  - Hospitalisation [None]
